FAERS Safety Report 4510999-0 (Version None)
Quarter: 2004Q4

REPORT INFORMATION
  Report Type: 
  Country: None (occurrence: None)
  Receive Date: 20040928
  Receipt Date: 20040726
  Transmission Date: 20050328
  Serious: Yes (Hospitalization)
  Sender: FDA-Public Use
  Company Number: 04P-163-0259664-00

PATIENT
  Age: 68 Year
  Sex: Female

DRUGS (7)
  1. HUMIRA [Suspect]
     Indication: RHEUMATOID ARTHRITIS
     Dosage: 40 MG, 1 IN 2 WK, SUBCUTANEOUS
     Route: 058
     Dates: start: 20040101, end: 20040301
  2. CONJUGATED ESTROGEN [Suspect]
     Indication: ABDOMINAL HYSTERECTOMY
     Dates: start: 19880301, end: 20040329
  3. SIMVASTATIN [Concomitant]
  4. CELECOXIB [Concomitant]
  5. ESOMEPRAZOLE [Concomitant]
  6. FUROSEMIDE [Concomitant]
  7. BISELECT [Concomitant]

REACTIONS (1)
  - DEEP VEIN THROMBOSIS [None]
